FAERS Safety Report 10103337 (Version 3)
Quarter: 2014Q3

REPORT INFORMATION
  Report Type: Spontaneous
  Country: US (occurrence: US)
  Receive Date: 20140424
  Receipt Date: 20140707
  Transmission Date: 20150326
  Serious: Yes (Other)
  Sender: FDA-Public Use
  Company Number: US-PFIZER INC-2014112473

PATIENT
  Age: 67 Year
  Sex: Male
  Weight: 115.6 kg

DRUGS (6)
  1. PROCARDIA [Suspect]
     Active Substance: NIFEDIPINE
     Indication: BLOOD CHOLESTEROL ABNORMAL
     Dosage: UNK
  2. NARDIL [Suspect]
     Active Substance: PHENELZINE SULFATE
     Indication: DEPRESSION
     Dosage: 15 MG, 4X/DAY
     Dates: start: 1980
  3. VIAGRA [Suspect]
     Active Substance: SILDENAFIL CITRATE
     Indication: ERECTILE DYSFUNCTION
     Dosage: 50 MG, AS NEEDED
  4. VIAGRA [Suspect]
     Active Substance: SILDENAFIL CITRATE
     Dosage: 50 MG, AS NEEDED
  5. KLONOPIN [Concomitant]
     Active Substance: CLONAZEPAM
     Indication: ANXIETY
     Dosage: 1/2 OR 1/4 TID AS NEEDED
  6. NARDIL [Suspect]
     Active Substance: PHENELZINE SULFATE
     Indication: ANXIETY

REACTIONS (3)
  - Colon cancer [Unknown]
  - Blood testosterone decreased [Unknown]
  - Weight decreased [Unknown]

NARRATIVE: CASE EVENT DATE: 201402
